FAERS Safety Report 8487646-9 (Version None)
Quarter: 2012Q3

REPORT INFORMATION
  Report Type: 
  Country: None (occurrence: None)
  Receive Date: 20120705
  Receipt Date: 20120703
  Transmission Date: 20120928
  Serious: Yes (Hospitalization, Other)
  Sender: FDA-Public Use
  Company Number: US-BAYER-2012-048390

PATIENT
  Age: 59 Year
  Sex: Male
  Weight: 126.8 kg

DRUGS (4)
  1. PROTONIX [Concomitant]
     Indication: GASTROOESOPHAGEAL REFLUX DISEASE
     Dosage: 40 MG, QD
  2. NEXAVAR [Suspect]
     Indication: HEPATIC NEOPLASM MALIGNANT
     Dosage: 400 MG, TID
     Route: 048
  3. HYDROCHLOROTHIAZIDE [Concomitant]
     Indication: HYPERTENSION
     Dosage: UNK UNK, QD
  4. LOSARTAN POTASSIUM [Concomitant]
     Indication: HYPERTENSION
     Dosage: UNK UNK, QD

REACTIONS (7)
  - BLOOD BILIRUBIN INCREASED [None]
  - MYALGIA [None]
  - LETHARGY [None]
  - FATIGUE [None]
  - ENCEPHALOPATHY [None]
  - AMMONIA INCREASED [None]
  - DECREASED APPETITE [None]
